FAERS Safety Report 25721511 (Version 2)
Quarter: 2025Q4

REPORT INFORMATION
  Report Type: Spontaneous
  Country: EU (occurrence: EU)
  Receive Date: 20250825
  Receipt Date: 20251027
  Transmission Date: 20260118
  Serious: Yes (Other)
  Sender: AUROBINDO
  Company Number: EU-ELI_LILLY_AND_COMPANY-ES202507018715

PATIENT
  Age: 68 Year
  Sex: Female

DRUGS (3)
  1. PREGABALIN [Suspect]
     Active Substance: PREGABALIN
     Indication: Arthralgia
     Dosage: 150 MILLIGRAM, AT BED TIME (150 MG, DAILY)
     Route: 065
  2. ABEMACICLIB [Suspect]
     Active Substance: ABEMACICLIB
     Indication: Breast cancer metastatic
     Dosage: 300 MILLIGRAM, AT BED TIME (150 MG, BID)
     Route: 048
     Dates: start: 20250710
  3. EXEMESTANE [Concomitant]
     Active Substance: EXEMESTANE
     Indication: Product used for unknown indication
     Dosage: UNK
     Route: 065

REACTIONS (19)
  - Malignant neoplasm progression [Unknown]
  - Crying [Recovering/Resolving]
  - Bone pain [Recovering/Resolving]
  - Chills [Unknown]
  - Mobility decreased [Recovering/Resolving]
  - Sleep disorder due to general medical condition, insomnia type [Recovered/Resolved]
  - Palpitations [Recovered/Resolved]
  - Hypersomnia [Recovering/Resolving]
  - Suffocation feeling [Recovered/Resolved]
  - Photopsia [Recovering/Resolving]
  - Cystitis [Recovered/Resolved]
  - Memory impairment [Recovered/Resolved]
  - Stomatitis [Recovering/Resolving]
  - Lacrimation increased [Recovering/Resolving]
  - Dizziness [Recovering/Resolving]
  - Urinary tract infection [Recovering/Resolving]
  - Nausea [Recovering/Resolving]
  - Fatigue [Recovering/Resolving]
  - Diarrhoea [Recovering/Resolving]

NARRATIVE: CASE EVENT DATE: 20250806
